FAERS Safety Report 13356259 (Version 2)
Quarter: 2017Q1

REPORT INFORMATION
  Report Type: Spontaneous
  Country: US (occurrence: US)
  Receive Date: 20170321
  Receipt Date: 20170327
  Transmission Date: 20170429
  Serious: Yes (Death)
  Sender: FDA-Public Use
  Company Number: US-PFIZER INC-2017116203

PATIENT
  Age: 76 Year
  Sex: Male

DRUGS (1)
  1. XALKORI [Suspect]
     Active Substance: CRIZOTINIB

REACTIONS (2)
  - Neoplasm progression [Fatal]
  - Pneumonia [Fatal]

NARRATIVE: CASE EVENT DATE: 20170308
